FAERS Safety Report 8002762-3 (Version None)
Quarter: 2011Q4

REPORT INFORMATION
  Report Type: 
  Country: None (occurrence: None)
  Receive Date: 20111222
  Receipt Date: 20111212
  Transmission Date: 20120403
  Serious: Yes (Hospitalization)
  Sender: FDA-Public Use
  Company Number: JP-MYLANLABS-2011S1023561

PATIENT
  Age: 74 Year
  Sex: Female
  Weight: 52 kg

DRUGS (15)
  1. EPADEL-S [Concomitant]
     Indication: HYPERLIPIDAEMIA
     Route: 048
  2. AMLODIPINE [Concomitant]
     Indication: HYPERTENSION
     Route: 048
  3. LIPITOR [Concomitant]
     Indication: HYPERLIPIDAEMIA
     Route: 048
  4. TAXOL [Suspect]
     Indication: BILE DUCT CANCER
     Route: 041
     Dates: start: 20100809, end: 20101101
  5. TAXOL [Suspect]
     Route: 041
     Dates: start: 20110411, end: 20110509
  6. NEUROTROPIN /00398601/ [Concomitant]
     Indication: BACK PAIN
     Route: 048
  7. TS-1 [Concomitant]
     Indication: BILE DUCT CANCER
     Route: 048
     Dates: start: 20100312, end: 20100328
  8. TAXOL [Suspect]
     Route: 041
     Dates: start: 20110530, end: 20110613
  9. CARBOPLATIN [Suspect]
     Indication: BILE DUCT CANCER
     Route: 041
     Dates: start: 20110711, end: 20111017
  10. TAXOL [Suspect]
     Route: 041
     Dates: start: 20101115, end: 20110328
  11. TAXOL [Suspect]
     Dates: start: 20110629
  12. MUCOSTA [Concomitant]
     Indication: BACK PAIN
     Route: 048
  13. GEMZAR [Concomitant]
     Indication: BILE DUCT CANCER
     Route: 042
     Dates: start: 20100312, end: 20100328
  14. MICARDIS [Concomitant]
     Indication: HYPERTENSION
     Route: 048
  15. RESTAMIN /00000401/ [Concomitant]
     Indication: ALLERGY PROPHYLAXIS
     Route: 048

REACTIONS (1)
  - RASH GENERALISED [None]
